FAERS Safety Report 18281528 (Version 1)
Quarter: 2020Q3

REPORT INFORMATION
  Report Type: Spontaneous
  Country: US (occurrence: US)
  Receive Date: 20200918
  Receipt Date: 20200918
  Transmission Date: 20201103
  Serious: Yes (Life-Threatening)
  Sender: FDA-Public Use
  Company Number: None

PATIENT
  Age: 35 Year
  Sex: Female
  Weight: 90 kg

DRUGS (2)
  1. NUVARING [Suspect]
     Active Substance: ETHINYL ESTRADIOL\ETONOGESTREL
     Indication: CONTRACEPTION
     Dates: start: 20170720, end: 20171020
  2. CHASTE BERRY [Concomitant]

REACTIONS (5)
  - Suicidal ideation [None]
  - Complication associated with device [None]
  - Drug ineffective [None]
  - Emotional disorder [None]
  - Depression [None]

NARRATIVE: CASE EVENT DATE: 20170720
